FAERS Safety Report 12304902 (Version 2)
Quarter: 2016Q4

REPORT INFORMATION
  Report Type: Spontaneous
  Country: US (occurrence: US)
  Receive Date: 20160426
  Receipt Date: 20161227
  Transmission Date: 20170207
  Serious: No
  Sender: FDA-Public Use
  Company Number: US-PFIZER INC-2016224463

PATIENT
  Age: 49 Year

DRUGS (1)
  1. DOXYCYCLINE HYCLATE. [Suspect]
     Active Substance: DOXYCYCLINE HYCLATE
     Dosage: UNK

REACTIONS (5)
  - Swelling face [Unknown]
  - Malaise [Unknown]
  - Influenza like illness [Unknown]
  - Drug hypersensitivity [Unknown]
  - Rash [Unknown]
